FAERS Safety Report 10510867 (Version 1)
Quarter: 2014Q4

REPORT INFORMATION
  Report Type: Spontaneous
  Country: IT (occurrence: IT)
  Receive Date: 20141010
  Receipt Date: 20141010
  Transmission Date: 20150528
  Serious: Yes (Life-Threatening)
  Sender: FDA-Public Use
  Company Number: IT-SA-2014SA136776

PATIENT
  Age: 82 Year
  Sex: Male

DRUGS (9)
  1. FERLIXIT [Suspect]
     Active Substance: SODIUM FERRIC GLUCONATE COMPLEX
     Indication: IRON DEFICIENCY ANAEMIA
     Route: 042
     Dates: start: 20140809, end: 20140809
  2. RANEXA [Concomitant]
     Active Substance: RANOLAZINE
     Dosage: PROLONGED RELEASE TABLETS
  3. CORLENTOR [Concomitant]
     Active Substance: IVABRADINE HYDROCHLORIDE
  4. CARDIRENE [Concomitant]
     Active Substance: ASPIRIN DL-LYSINE
  5. DILZENE [Concomitant]
     Active Substance: DILTIAZEM HYDROCHLORIDE
  6. LANSOX [Concomitant]
     Active Substance: LANSOPRAZOLE
  7. TOTALIP [Concomitant]
     Active Substance: ATORVASTATIN
  8. SEACOR [Concomitant]
     Active Substance: OMEGA-3 FATTY ACIDS
  9. SPIRIVA [Concomitant]
     Active Substance: TIOTROPIUM BROMIDE MONOHYDRATE
     Dosage: 18 MCG

REACTIONS (2)
  - Dyspnoea [Recovered/Resolved]
  - Respiratory failure [Recovered/Resolved]

NARRATIVE: CASE EVENT DATE: 20140809
